FAERS Safety Report 12643436 (Version 1)
Quarter: 2016Q3

REPORT INFORMATION
  Report Type: Spontaneous
  Country: US (occurrence: US)
  Receive Date: 20160811
  Receipt Date: 20160811
  Transmission Date: 20161109
  Serious: No
  Sender: FDA-Public Use
  Company Number: US-VERTEX PHARMACEUTICALS-2016-004757

PATIENT
  Age: 12 Year
  Sex: Female

DRUGS (1)
  1. ORKAMBI [Suspect]
     Active Substance: IVACAFTOR\LUMACAFTOR
     Indication: CYSTIC FIBROSIS
     Dosage: 400- 250 MG, BID
     Route: 048
     Dates: start: 20160711

REACTIONS (1)
  - Cough [Unknown]

NARRATIVE: CASE EVENT DATE: 20160711
